FAERS Safety Report 4728326-2 (Version None)
Quarter: 2005Q3

REPORT INFORMATION
  Report Type: 
  Country: None (occurrence: None)
  Receive Date: 20050727
  Receipt Date: 20050714
  Transmission Date: 20060218
  Serious: Yes (Hospitalization, Other)
  Sender: FDA-Public Use
  Company Number: 2005092825

PATIENT
  Age: 47 Year
  Sex: Female

DRUGS (5)
  1. FELDENE [Suspect]
     Indication: EPICONDYLITIS
     Dosage: 40 MG (20 MG, 2 IN 1 D), ORAL
     Route: 048
     Dates: start: 20050526, end: 20050531
  2. FELDENE [Suspect]
     Indication: EXOSTOSIS
     Dosage: 40 MG (20 MG, 2 IN 1 D), ORAL
     Route: 048
     Dates: start: 20050526, end: 20050531
  3. ZYRTEC [Suspect]
     Indication: URTICARIA
     Dosage: 10 MG (10 MG, 1 IN 1 D), ORAL
     Route: 048
     Dates: start: 20050601
  4. TANNOSYNT (UREA-CRESOL-SULFONATE-SODIUM) [Suspect]
     Indication: URTICARIA
     Dosage: TRANSDERMAL
     Route: 062
     Dates: start: 20050601
  5. LEVOTHYROXINE SODIUM [Concomitant]

REACTIONS (6)
  - DERMATITIS BULLOUS [None]
  - EOSINOPHILIA [None]
  - ERYTHEMA [None]
  - PHOTOSENSITIVITY REACTION [None]
  - SWELLING FACE [None]
  - URTICARIA LOCALISED [None]
